FAERS Safety Report 22873382 (Version 7)
Quarter: 2024Q2

REPORT INFORMATION
  Report Type: Report from Study
  Country: GB (occurrence: GB)
  Receive Date: 20230828
  Receipt Date: 20240402
  Transmission Date: 20240716
  Serious: Yes (Other)
  Sender: FDA-Public Use
  Company Number: GB-IPSEN Group, Research and Development-2022-30736

PATIENT
  Age: 59 Year
  Sex: Male

DRUGS (4)
  1. RAMIPRIL [Suspect]
     Active Substance: RAMIPRIL
     Indication: Product used for unknown indication
     Dosage: UNK
     Route: 065
  2. LANREOTIDE ACETATE [Suspect]
     Active Substance: LANREOTIDE ACETATE
     Indication: Neuroendocrine tumour
     Dosage: 120 MILLIGRAM, Q28D (120MG/0.5ML)
     Route: 058
     Dates: start: 20221104
  3. LANREOTIDE ACETATE [Suspect]
     Active Substance: LANREOTIDE ACETATE
     Dosage: 120 MILLIGRAM, (120MG/0.5ML)
     Route: 058
     Dates: start: 20221104
  4. OMEPRAZOLE [Concomitant]
     Active Substance: OMEPRAZOLE
     Dosage: UNK
     Route: 065

REACTIONS (33)
  - Syncope [Recovered/Resolved]
  - Blood pressure increased [Unknown]
  - Chest discomfort [Unknown]
  - Cold sweat [Unknown]
  - Injection site pain [Unknown]
  - Musculoskeletal pain [Not Recovered/Not Resolved]
  - Abdominal distension [Not Recovered/Not Resolved]
  - Flatulence [Unknown]
  - Pain in extremity [Not Recovered/Not Resolved]
  - Thirst [Unknown]
  - Musculoskeletal pain [Unknown]
  - Wisdom teeth removal [Unknown]
  - Bone pain [Unknown]
  - Muscular weakness [Unknown]
  - Bowel movement irregularity [Unknown]
  - Heart rate increased [Unknown]
  - Malaise [Unknown]
  - Urine output increased [Unknown]
  - Chest pain [Unknown]
  - Dizziness [Unknown]
  - Abdominal pain upper [Recovered/Resolved]
  - Dyspepsia [Recovering/Resolving]
  - Anxiety [Unknown]
  - Burning sensation [Unknown]
  - Fatigue [Not Recovered/Not Resolved]
  - Taste disorder [Unknown]
  - Pruritus [Unknown]
  - Diarrhoea [Unknown]
  - Dyspnoea [Unknown]
  - Arthralgia [Unknown]
  - Headache [Unknown]
  - Dizziness [Unknown]
  - Inappropriate schedule of product administration [Unknown]
